FAERS Safety Report 4296086-8 (Version None)
Quarter: 2004Q1

REPORT INFORMATION
  Report Type: 
  Country: None (occurrence: None)
  Receive Date: 20040212
  Receipt Date: 20040130
  Transmission Date: 20041129
  Serious: Yes (Other)
  Sender: FDA-Public Use
  Company Number: GBWYE552603FEB04

PATIENT
  Age: 51 Year
  Sex: Male

DRUGS (2)
  1. EFFEXOR [Suspect]
     Indication: ACUTE STRESS DISORDER
     Dosage: 1 TABLET 1X PER 1 DAY ORAL
     Route: 048
     Dates: start: 20030225, end: 20030228
  2. HYDROCORTISONE [Concomitant]

REACTIONS (1)
  - MUSCLE SPASMS [None]
